FAERS Safety Report 6521104-3 (Version None)
Quarter: 2009Q4

REPORT INFORMATION
  Report Type: 
  Country: None (occurrence: None)
  Receive Date: 20091222
  Receipt Date: 20091214
  Transmission Date: 20100525
  Serious: Yes (Disabling)
  Sender: FDA-Public Use
  Company Number: TRP_06600_2009

PATIENT
  Sex: Male
  Weight: 129.3205 kg

DRUGS (6)
  1. RIBAVARIN [Suspect]
     Indication: HEPATITIS C
     Dosage: 600 MG BID ORAL
     Route: 048
     Dates: start: 20090123
  2. PEGASYS [Suspect]
     Indication: HEPATITIS C
     Dosage: 180 UG 1X/WEEK SUBCUTANOUS
     Route: 058
     Dates: start: 20090123
  3. LACTULOSE [Concomitant]
  4. ZOLOFT /01011402/ [Concomitant]
  5. OMEPRAZOLE [Concomitant]
  6. AMBIEN [Concomitant]

REACTIONS (7)
  - AGITATION [None]
  - FEELING ABNORMAL [None]
  - HEADACHE [None]
  - HYPERVENTILATION [None]
  - PAIN [None]
  - PANIC ATTACK [None]
  - STRESS [None]
